FAERS Safety Report 24867477 (Version 2)
Quarter: 2025Q1

REPORT INFORMATION
  Report Type: Spontaneous
  Country: US (occurrence: US)
  Receive Date: 20250121
  Receipt Date: 20250130
  Transmission Date: 20250409
  Serious: No
  Sender: ROCHE
  Company Number: US-ROCHE-10000176771

PATIENT
  Age: 26 Year
  Sex: Female
  Weight: 64.4 kg

DRUGS (2)
  1. XOLAIR [Suspect]
     Active Substance: OMALIZUMAB
     Indication: Urticaria
     Route: 058
     Dates: start: 202410
  2. XOLAIR [Suspect]
     Active Substance: OMALIZUMAB
     Route: 058

REACTIONS (6)
  - Needle issue [Unknown]
  - Accidental exposure to product [Unknown]
  - Product dose omission issue [Unknown]
  - No adverse event [Unknown]
  - Device defective [Unknown]
  - Off label use [Unknown]

NARRATIVE: CASE EVENT DATE: 20250108
